FAERS Safety Report 14565263 (Version 2)
Quarter: 2018Q1

REPORT INFORMATION
  Report Type: Spontaneous
  Country: US (occurrence: US)
  Receive Date: 20180223
  Receipt Date: 20180228
  Transmission Date: 20180509
  Serious: No
  Sender: FDA-Public Use
  Company Number: US-LUNDBECK-DKLU2044145

PATIENT
  Sex: Male

DRUGS (2)
  1. NORTHERA [Suspect]
     Active Substance: DROXIDOPA
     Indication: PARKINSON^S DISEASE
     Dosage: 100MG AND 300MG TO MAKE UP 400MG TID
     Route: 048
     Dates: start: 20170525
  2. NORTHERA [Suspect]
     Active Substance: DROXIDOPA
     Dosage: 100MG AND 300MG TO MAKE UP 400MG TID
     Route: 048
     Dates: start: 20170525

REACTIONS (2)
  - Dysstasia [Unknown]
  - Fatigue [Unknown]
